FAERS Safety Report 9067518 (Version 1)
Quarter: 2013Q1

REPORT INFORMATION
  Report Type: Report from Study
  Country: US (occurrence: US)
  Receive Date: 20130214
  Receipt Date: 20130214
  Transmission Date: 20140127
  Serious: Yes (Other)
  Sender: FDA-Public Use
  Company Number: US-US-EMD SERONO, INC.-7192550

PATIENT
  Age: 6 None
  Sex: Male
  Weight: 18 kg

DRUGS (1)
  1. SAIZEN [(SOMATROPIN (RDNA ORIGIN) FOR INJECTION)] [Suspect]
     Indication: SMALL FOR DATES BABY
     Dates: start: 20090912

REACTIONS (7)
  - Myringotomy [Recovering/Resolving]
  - Ear tube insertion [Recovering/Resolving]
  - Tonsillectomy [Recovering/Resolving]
  - Adenoidectomy [Recovering/Resolving]
  - Blood creatine phosphokinase increased [Not Recovered/Not Resolved]
  - Aggression [Unknown]
  - Dental caries [Not Recovered/Not Resolved]
